FAERS Safety Report 8198573-9 (Version None)
Quarter: 2012Q1

REPORT INFORMATION
  Report Type: 
  Country: None (occurrence: None)
  Receive Date: 20120309
  Receipt Date: 20111227
  Transmission Date: 20120608
  Serious: No
  Sender: FDA-Public Use
  Company Number: US-AMGEN-USASP2011069015

PATIENT
  Age: 70 Year
  Sex: Female

DRUGS (5)
  1. PROLIA [Suspect]
     Indication: OSTEOPOROSIS POSTMENOPAUSAL
     Dosage: 60 MG, Q6MO
     Dates: start: 20110208
  2. SIMVASTATIN [Concomitant]
  3. MULTIVITAMIN                       /00097801/ [Concomitant]
  4. SUPEROXIDE DISMUTASE [Concomitant]
     Indication: ARTHRALGIA
  5. CALCIUM + VITAMIN D                /01483701/ [Concomitant]
     Dosage: UNK

REACTIONS (5)
  - JOINT RANGE OF MOTION DECREASED [None]
  - BURSITIS [None]
  - PAIN IN EXTREMITY [None]
  - BACK PAIN [None]
  - FALL [None]
